FAERS Safety Report 7006190-9 (Version None)
Quarter: 2010Q3

REPORT INFORMATION
  Report Type: 
  Country: None (occurrence: None)
  Receive Date: 20100917
  Receipt Date: 20100908
  Transmission Date: 20110219
  Serious: Yes (Death)
  Sender: FDA-Public Use
  Company Number: AXC-2010-000235

PATIENT
  Age: 49 Year
  Sex: Male

DRUGS (1)
  1. SUCRALFATE [Suspect]
     Indication: PRODUCT USED FOR UNKNOWN INDICATION
     Dosage: 6 G, QD,
     Dates: start: 19880122, end: 19880804

REACTIONS (1)
  - BEZOAR [None]
